FAERS Safety Report 11534514 (Version 2)
Quarter: 2015Q4

REPORT INFORMATION
  Report Type: Report from Study
  Country: DE (occurrence: DE)
  Receive Date: 20150922
  Receipt Date: 20151021
  Transmission Date: 20160304
  Serious: Yes (Death, Other)
  Sender: FDA-Public Use
  Company Number: PHHY2015DE017282

PATIENT
  Age: 54 Year
  Sex: Male
  Weight: 55 kg

DRUGS (5)
  1. LDK378 [Suspect]
     Active Substance: CERITINIB
     Dosage: 600 MG, UNK
     Route: 048
     Dates: start: 20141021, end: 20150208
  2. JUNIK [Concomitant]
     Active Substance: BECLOMETHASONE DIPROPIONATE
     Indication: ASTHMA
     Dosage: 100 HGB, PRN
     Route: 065
     Dates: start: 2004
  3. LDK378 [Suspect]
     Active Substance: CERITINIB
     Dosage: 600 MG, QD
     Route: 048
     Dates: start: 20150223, end: 201507
  4. LDK378 [Suspect]
     Active Substance: CERITINIB
     Dosage: 600 MG, UNK
     Route: 048
     Dates: start: 20141001, end: 20141003
  5. LDK378 [Suspect]
     Active Substance: CERITINIB
     Indication: NON-SMALL CELL LUNG CANCER
     Dosage: 150 MG, UNK
     Route: 048
     Dates: start: 20140818, end: 20140930

REACTIONS (10)
  - Acute kidney injury [Fatal]
  - Pyrexia [Recovered/Resolved]
  - Diarrhoea [Recovered/Resolved]
  - Abdominal pain [Recovered/Resolved]
  - Hepatotoxicity [Recovered/Resolved]
  - Fatigue [Recovered/Resolved]
  - Septic shock [Fatal]
  - Metastases to central nervous system [Not Recovered/Not Resolved]
  - Viral infection [Recovered/Resolved]
  - Hepatic enzyme increased [Recovered/Resolved]

NARRATIVE: CASE EVENT DATE: 20150204
